FAERS Safety Report 19083851 (Version 1)
Quarter: 2021Q2

REPORT INFORMATION
  Report Type: Spontaneous
  Country: HU (occurrence: HU)
  Receive Date: 20210401
  Receipt Date: 20210401
  Transmission Date: 20210717
  Serious: Yes (Other)
  Sender: FDA-Public Use
  Company Number: HU-ORPHANEU-2019010065

PATIENT

DRUGS (16)
  1. OCTREOTIDE, LONG ACTING [Suspect]
     Active Substance: OCTREOTIDE ACETATE
     Dosage: 20 MG, QMO
     Route: 065
  2. PEGVISOMANT [Concomitant]
     Active Substance: PEGVISOMANT
     Dosage: 20 MG, QD
     Route: 065
  3. OCTREOTIDE, LONG ACTING [Suspect]
     Active Substance: OCTREOTIDE ACETATE
     Dosage: 20 MG, QMO
     Route: 065
     Dates: start: 2014
  4. BROMOCRIPTINE [Concomitant]
     Active Substance: BROMOCRIPTINE
     Indication: PRODUCT USED FOR UNKNOWN INDICATION
     Dosage: UNK
     Route: 065
  5. BROMOCRIPTINE [Concomitant]
     Active Substance: BROMOCRIPTINE
     Dosage: UNK
     Route: 065
  6. OCTREOTIDE, LONG ACTING [Suspect]
     Active Substance: OCTREOTIDE ACETATE
     Dosage: 30 MG, QMO
     Route: 065
  7. PASIREOTIDE LAR [Suspect]
     Active Substance: PASIREOTIDE
     Dosage: 40 MG, QMO
     Route: 065
     Dates: start: 2019
  8. BROMOCRIPTINE [Concomitant]
     Active Substance: BROMOCRIPTINE
     Dosage: UNK
     Route: 065
  9. PEGVISOMANT [Concomitant]
     Active Substance: PEGVISOMANT
     Indication: ACROMEGALY
     Dosage: 15 MG, QD
     Route: 065
     Dates: start: 2016
  10. PEGVISOMANT [Concomitant]
     Active Substance: PEGVISOMANT
     Dosage: 30 MG, QD
     Route: 065
     Dates: start: 2018
  11. PEGVISOMANT [Concomitant]
     Active Substance: PEGVISOMANT
     Dosage: 15 MG, TID
     Route: 065
     Dates: start: 2019
  12. OCTREOTIDE, LONG ACTING [Suspect]
     Active Substance: OCTREOTIDE ACETATE
     Indication: ACROMEGALY
     Dosage: 10 MG, QMO
     Route: 065
     Dates: start: 2005
  13. OCTREOTIDE, LONG ACTING [Suspect]
     Active Substance: OCTREOTIDE ACETATE
     Dosage: 10 MG, QMO
     Route: 065
     Dates: start: 2009
  14. OCTREOTIDE, LONG ACTING [Suspect]
     Active Substance: OCTREOTIDE ACETATE
     Dosage: 30 MG, QMO
     Route: 065
     Dates: start: 2015
  15. OCTREOTIDE, LONG ACTING [Suspect]
     Active Substance: OCTREOTIDE ACETATE
     Dosage: 10 MG, QMO
     Route: 065
     Dates: start: 2011
  16. PASIREOTIDE LAR [Suspect]
     Active Substance: PASIREOTIDE
     Dosage: 60 MG, QMO
     Route: 065
     Dates: start: 2018

REACTIONS (5)
  - Neoplasm progression [Unknown]
  - Drug ineffective [Unknown]
  - Type 2 diabetes mellitus [Unknown]
  - Pituitary tumour benign [Unknown]
  - Therapy non-responder [Unknown]
